FAERS Safety Report 14102078 (Version 1)
Quarter: 2017Q4

REPORT INFORMATION
  Report Type: Report from Study
  Country: US (occurrence: US)
  Receive Date: 20171018
  Receipt Date: 20171018
  Transmission Date: 20180321
  Serious: Yes (Hospitalization)
  Sender: FDA-Public Use
  Company Number: US-BAYER-2017-152811

PATIENT
  Age: 69 Year
  Sex: Male

DRUGS (1)
  1. STIVARGA [Suspect]
     Active Substance: REGORAFENIB
     Indication: RECTAL CANCER
     Dosage: 160 MG DAILY FOR 21 DAYS ON, 7 DAYS OFF
     Route: 048
     Dates: start: 20170510, end: 20170924

REACTIONS (1)
  - Kidney infection [Unknown]
